FAERS Safety Report 10845043 (Version 1)
Quarter: 2015Q1

REPORT INFORMATION
  Report Type: Spontaneous
  Country: US (occurrence: US)
  Receive Date: 20150220
  Receipt Date: 20150220
  Transmission Date: 20150721
  Serious: Yes (Hospitalization, Other)
  Sender: FDA-Public Use
  Company Number: US-ABBVIE-14P-163-1299445-00

PATIENT
  Age: 75 Year

DRUGS (2)
  1. HUMIRA [Suspect]
     Active Substance: ADALIMUMAB
     Indication: PSORIATIC ARTHROPATHY
     Route: 065
     Dates: start: 2012
  2. HUMIRA [Suspect]
     Active Substance: ADALIMUMAB
     Indication: PSORIASIS
     Route: 065

REACTIONS (6)
  - Eye disorder [Unknown]
  - Device issue [Unknown]
  - Device issue [Unknown]
  - Pneumonia [Unknown]
  - Device issue [Unknown]
  - Cataract [Unknown]

NARRATIVE: CASE EVENT DATE: 20140922
